FAERS Safety Report 9277182 (Version 1)
Quarter: 2013Q2

REPORT INFORMATION
  Report Type: Spontaneous
  Country: US (occurrence: US)
  Receive Date: 20130508
  Receipt Date: 20130508
  Transmission Date: 20140414
  Serious: Yes (Other)
  Sender: FDA-Public Use
  Company Number: US-AMGEN-USASP2013031231

PATIENT
  Age: 44 Year
  Sex: Female

DRUGS (2)
  1. EPOGEN [Suspect]
     Indication: RENAL FAILURE CHRONIC
     Dosage: 28000 UNIT, UNK
  2. VENOFER [Concomitant]
     Dosage: UNK

REACTIONS (1)
  - Haemoglobin decreased [Unknown]
